FAERS Safety Report 4271574-9 (Version None)
Quarter: 2004Q1

REPORT INFORMATION
  Report Type: 
  Country: None (occurrence: None)
  Receive Date: 20040113
  Receipt Date: 20031230
  Transmission Date: 20041129
  Serious: Yes (Hospitalization)
  Sender: FDA-Public Use
  Company Number: STA-AE-03-MTX-175

PATIENT
  Age: 73 Year
  Sex: Female

DRUGS (3)
  1. RHEUMATREX [Suspect]
     Indication: RHEUMATOID ARTHRITIS
     Dosage: 8 MG 1 X PER 1 WK/ORAL
     Route: 048
     Dates: start: 19990901, end: 20031127
  2. LIPOVAS ^BANYU^ (SIMVASTATIN) [Concomitant]
  3. DIDRONEL [Concomitant]

REACTIONS (4)
  - ANAEMIA [None]
  - LEUKAEMIA [None]
  - LEUKOPENIA [None]
  - STOMATITIS HAEMORRHAGIC [None]
